FAERS Safety Report 9519374 (Version 1)
Quarter: 2013Q3

REPORT INFORMATION
  Report Type: Spontaneous
  Country: PT (occurrence: PT)
  Receive Date: 20130912
  Receipt Date: 20130912
  Transmission Date: 20140515
  Serious: Yes (Hospitalization)
  Sender: FDA-Public Use
  Company Number: PT-TEVA-431081ISR

PATIENT
  Age: 57 Year
  Sex: Male

DRUGS (6)
  1. VALPROIC ACID [Suspect]
     Indication: EPILEPSY
     Route: 065
  2. VALPROIC ACID [Suspect]
     Route: 065
  3. ASPIRIN [Suspect]
     Indication: TRANSIENT ISCHAEMIC ATTACK
     Dosage: 300 MILLIGRAM DAILY;
     Route: 065
  4. SIMVASTATIN [Concomitant]
     Dosage: 40 MILLIGRAM DAILY;
     Route: 065
  5. CAPTOPRIL [Concomitant]
     Indication: HYPERTENSION
     Dosage: 50 MILLIGRAM DAILY;
     Route: 065
  6. METFORMIN [Concomitant]
     Indication: TYPE 2 DIABETES MELLITUS
     Dosage: 2000 MILLIGRAM DAILY;
     Route: 065

REACTIONS (3)
  - Hyperammonaemic encephalopathy [Recovered/Resolved]
  - Coma [Recovered/Resolved]
  - Liver disorder [Recovered/Resolved]
